FAERS Safety Report 4736554-5 (Version None)
Quarter: 2005Q3

REPORT INFORMATION
  Report Type: 
  Country: None (occurrence: None)
  Receive Date: 20050805
  Receipt Date: 20050805
  Transmission Date: 20060218
  Serious: Yes (Other)
  Sender: FDA-Public Use
  Company Number: None

PATIENT
  Sex: Female
  Weight: 77 kg

DRUGS (3)
  1. METFORMIN    500MG    UNKNOWN [Suspect]
     Indication: DIABETES MELLITUS NON-INSULIN-DEPENDENT
     Dosage: 500MG    BREAKFAST   ORAL;   1000MG   DINNER  ORAL
     Route: 048
     Dates: start: 20050121, end: 20050615
  2. METFORMIN    500MG    UNKNOWN [Suspect]
     Indication: DIABETES MELLITUS NON-INSULIN-DEPENDENT
     Dosage: 500MG    BREAKFAST   ORAL;   1000MG   DINNER  ORAL
     Route: 048
     Dates: start: 20050121, end: 20050615
  3. INSULIN [Concomitant]

REACTIONS (2)
  - PHOTOSENSITIVITY REACTION [None]
  - URTICARIA [None]
